FAERS Safety Report 5228911-8 (Version None)
Quarter: 2007Q1

REPORT INFORMATION
  Report Type: 
  Country: None (occurrence: None)
  Receive Date: 20070205
  Receipt Date: 20070126
  Transmission Date: 20070707
  Serious: Yes (Hospitalization)
  Sender: FDA-Public Use
  Company Number: AT-SANOFI-SYNTHELABO-A01200700836

PATIENT
  Age: 45 Year
  Sex: Male

DRUGS (7)
  1. SIMVASTATIN [Concomitant]
     Indication: DRUG USE FOR UNKNOWN INDICATION
     Dosage: 20 MG
     Route: 048
     Dates: start: 20030101
  2. INSULIN [Concomitant]
     Indication: DRUG USE FOR UNKNOWN INDICATION
     Dosage: 34 UNIT
     Route: 048
     Dates: start: 20030101
  3. TRESLEEN [Interacting]
     Indication: DRUG USE FOR UNKNOWN INDICATION
     Dosage: 500 MG
     Route: 048
     Dates: start: 20061030, end: 20061115
  4. MARCUMAR [Interacting]
     Indication: DRUG USE FOR UNKNOWN INDICATION
     Dosage: 3-4.5 MG
     Route: 048
     Dates: start: 20030101, end: 20061110
  5. MARCUMAR [Interacting]
     Dosage: 6 MG
     Route: 048
     Dates: start: 20061111, end: 20061114
  6. MARCUMAR [Interacting]
     Dosage: 3-4.5 MG
     Route: 048
     Dates: start: 20061115
  7. IVADAL [Suspect]
     Indication: DRUG USE FOR UNKNOWN INDICATION
     Dosage: 20 MG
     Route: 048

REACTIONS (1)
  - INTERNATIONAL NORMALISED RATIO DECREASED [None]
